FAERS Safety Report 5152554-8 (Version None)
Quarter: 2006Q4

REPORT INFORMATION
  Report Type: 
  Country: None (occurrence: None)
  Receive Date: 20061109
  Receipt Date: 20061030
  Transmission Date: 20070319
  Serious: Yes (Death, Life-Threatening)
  Sender: FDA-Public Use
  Company Number: A-CH2006-13132

PATIENT
  Age: 83 Year
  Sex: Female

DRUGS (10)
  1. TRACLEER [Suspect]
     Indication: PULMONARY HYPERTENSION
     Dosage: SEE IMAGE
     Route: 048
     Dates: start: 20040317, end: 20040416
  2. TRACLEER [Suspect]
     Indication: PULMONARY HYPERTENSION
     Dosage: SEE IMAGE
     Route: 048
     Dates: start: 20040417, end: 20050407
  3. TRACLEER [Suspect]
     Indication: PULMONARY HYPERTENSION
     Dosage: SEE IMAGE
     Route: 048
     Dates: start: 20050408, end: 20050411
  4. TRACLEER [Suspect]
     Indication: PULMONARY HYPERTENSION
     Dosage: SEE IMAGE
     Route: 048
     Dates: start: 20050413, end: 20060101
  5. VENTAVIS [Concomitant]
  6. ALDACTONE [Concomitant]
  7. XIPAMIDE (XIPAMIDE) [Concomitant]
  8. URSOFLAK (URSODEOXYCHOLIC ACID) [Concomitant]
  9. MARCUMAR [Concomitant]
  10. ALLOPURINOL [Concomitant]

REACTIONS (6)
  - HYPERBILIRUBINAEMIA [None]
  - JAUNDICE [None]
  - LIVER FUNCTION TEST ABNORMAL [None]
  - PRURITUS [None]
  - PULMONARY HYPERTENSION [None]
  - RIGHT VENTRICULAR FAILURE [None]
